FAERS Safety Report 16491922 (Version 2)
Quarter: 2019Q3

REPORT INFORMATION
  Report Type: Spontaneous
  Country: US (occurrence: US)
  Receive Date: 20190628
  Receipt Date: 20190809
  Transmission Date: 20191004
  Serious: No
  Sender: FDA-Public Use
  Company Number: US-LEO PHARMA-319437

PATIENT
  Sex: Female

DRUGS (1)
  1. SKINOREN CUTANEOUS FOAM [Suspect]
     Active Substance: AZELAIC ACID
     Indication: ACNE
     Route: 061
     Dates: start: 20180401

REACTIONS (4)
  - Application site papules [Recovering/Resolving]
  - Product use in unapproved indication [Unknown]
  - Application site exfoliation [Recovering/Resolving]
  - Application site scab [Recovering/Resolving]
